FAERS Safety Report 8854187 (Version 1)
Quarter: 2012Q4

REPORT INFORMATION
  Report Type: 
  Country: CH (occurrence: CH)
  Receive Date: 20121022
  Receipt Date: 20121022
  Transmission Date: 20130627
  Serious: Yes (Hospitalization, Other)
  Sender: FDA-Public Use
  Company Number: CH-AMGEN-CHESP2012052047

PATIENT
  Age: 71 Year
  Sex: Female

DRUGS (11)
  1. PROLIA [Suspect]
     Indication: OSTEOPOROSIS POSTMENOPAUSAL
     Dosage: 60 mg, one time dose
     Route: 058
     Dates: start: 20120704, end: 20120704
  2. SINTROM MITIS [Concomitant]
     Dosage: 1 mg, prn
     Route: 048
  3. BELOC ZOK [Concomitant]
     Dosage: 150 mg, qd
     Route: 048
  4. AMLODIPIN                          /00972401/ [Concomitant]
     Dosage: 10 mg, qd
     Route: 048
  5. LISINOPRIL [Concomitant]
     Dosage: 5 mg, qd
     Route: 048
  6. SORTIS [Concomitant]
     Dosage: 40 mg, qd
     Route: 048
  7. NEXIUM                             /01479302/ [Concomitant]
     Dosage: 20 mg, qd
     Route: 048
  8. TOREM                              /01036501/ [Concomitant]
     Dosage: 5 mg, qd
     Route: 048
     Dates: start: 20120625
  9. VI-DE 3 [Concomitant]
     Dosage: 1000 IU, qd
     Route: 048
     Dates: start: 20120627
  10. RENAGEL                            /01459901/ [Concomitant]
     Dosage: 800 mg, bid
     Route: 048
     Dates: start: 20120614, end: 20120711
  11. CALCIMAGON D3 [Concomitant]
     Indication: OSTEOPOROSIS
     Dosage: 500 ml, qd
     Route: 048
     Dates: start: 20120704

REACTIONS (3)
  - Cardiac disorder [Recovered/Resolved]
  - Hypocalcaemia [Recovered/Resolved]
  - Electrocardiogram abnormal [Recovered/Resolved]
